FAERS Safety Report 6622960-0 (Version None)
Quarter: 2010Q1

REPORT INFORMATION
  Report Type: 
  Country: None (occurrence: None)
  Receive Date: 20100310
  Receipt Date: 20100105
  Transmission Date: 20100710
  Serious: No
  Sender: FDA-Public Use
  Company Number: US-BIOGENIDEC-2010BI000407

PATIENT
  Sex: Female

DRUGS (3)
  1. AVONEX [Suspect]
     Indication: MULTIPLE SCLEROSIS
     Route: 030
  2. SPEED [Concomitant]
     Indication: FATIGUE
  3. ADVIL LIQUI-GELS [Concomitant]
     Indication: PROPHYLAXIS

REACTIONS (3)
  - INFLUENZA LIKE ILLNESS [None]
  - ROAD TRAFFIC ACCIDENT [None]
  - WHIPLASH INJURY [None]
